FAERS Safety Report 6751096-3 (Version None)
Quarter: 2010Q2

REPORT INFORMATION
  Report Type: 
  Country: None (occurrence: None)
  Receive Date: 20100602
  Receipt Date: 20100525
  Transmission Date: 20101027
  Serious: Yes (Hospitalization, Other)
  Sender: FDA-Public Use
  Company Number: US-ASTRAZENECA-2010SE23863

PATIENT
  Age: 74 Year
  Sex: Female

DRUGS (7)
  1. SEROQUEL [Suspect]
     Route: 048
     Dates: end: 20100501
  2. DULCOLAX [Suspect]
     Indication: CONSTIPATION
     Dosage: 5 TABLETS TWICE A DAY
     Route: 048
  3. MORPHINE [Concomitant]
  4. HYDROCODONE [Concomitant]
  5. LYRICA [Concomitant]
  6. AMITRIPTYLINE [Concomitant]
  7. NAMENDA [Concomitant]

REACTIONS (4)
  - FEMUR FRACTURE [None]
  - GAIT DISTURBANCE [None]
  - KNEE ARTHROPLASTY [None]
  - MULTIPLE FRACTURES [None]
